FAERS Safety Report 18597720 (Version 3)
Quarter: 2021Q1

REPORT INFORMATION
  Report Type: Report from Study
  Country: JP (occurrence: JP)
  Receive Date: 20201210
  Receipt Date: 20210127
  Transmission Date: 20210419
  Serious: Yes (Other)
  Sender: FDA-Public Use
  Company Number: JP-BEH-2020125975

PATIENT
  Sex: Male
  Weight: 60 kg

DRUGS (1)
  1. PRIVIGEN [Suspect]
     Active Substance: HUMAN IMMUNOGLOBULIN G
     Indication: ROUTINE HEALTH MAINTENANCE
     Dosage: 60 GRAM, Q3W
     Route: 042

REACTIONS (1)
  - Condition aggravated [Unknown]
